FAERS Safety Report 11907411 (Version 1)
Quarter: 2016Q1

REPORT INFORMATION
  Report Type: Report from Study
  Country: BR (occurrence: BR)
  Receive Date: 20160111
  Receipt Date: 20160111
  Transmission Date: 20160526
  Serious: Yes (Hospitalization, Other)
  Sender: FDA-Public Use
  Company Number: BR-ABBVIE-16K-020-1533001-00

PATIENT
  Sex: Female
  Weight: 52 kg

DRUGS (3)
  1. HUMIRA [Suspect]
     Active Substance: ADALIMUMAB
     Dosage: WEEK 2
     Route: 058
     Dates: start: 201509, end: 201509
  2. HUMIRA [Suspect]
     Active Substance: ADALIMUMAB
     Indication: CROHN^S DISEASE
     Dosage: INDUCTION DOSE
     Route: 058
     Dates: start: 20150903, end: 20150903
  3. HUMIRA [Suspect]
     Active Substance: ADALIMUMAB
     Route: 058
     Dates: start: 2015, end: 20151125

REACTIONS (7)
  - Chest pain [Not Recovered/Not Resolved]
  - Tuberculosis [Recovering/Resolving]
  - Chest X-ray abnormal [Unknown]
  - Pain in extremity [Not Recovered/Not Resolved]
  - Musculoskeletal chest pain [Unknown]
  - Arthralgia [Not Recovered/Not Resolved]
  - Swelling [Recovering/Resolving]

NARRATIVE: CASE EVENT DATE: 2015
